FAERS Safety Report 15179719 (Version 1)
Quarter: 2018Q3

REPORT INFORMATION
  Report Type: Spontaneous
  Country: US (occurrence: US)
  Receive Date: 20180623
  Receipt Date: 20180623
  Transmission Date: 20181010
  Serious: Yes (Disabling)
  Sender: FDA-Public Use
  Company Number: None

PATIENT
  Age: 53 Year
  Sex: Female
  Weight: 78.75 kg

DRUGS (8)
  1. TRAMADOL. [Concomitant]
     Active Substance: TRAMADOL
  2. GABAPENTIN. [Concomitant]
     Active Substance: GABAPENTIN
  3. MULTI VITAMIN [Concomitant]
     Active Substance: VITAMINS
  4. PERCOCET [Concomitant]
     Active Substance: ACETAMINOPHEN\OXYCODONE HYDROCHLORIDE
  5. DANOCRINE [Suspect]
     Active Substance: DANAZOL
     Indication: ENDOMETRIOSIS
  6. LUPRON DEPOT [Suspect]
     Active Substance: LEUPROLIDE ACETATE
     Indication: ENDOMETRIOSIS
     Dosage: ?          QUANTITY:1 DF DOSAGE FORM;?
     Route: 058
  7. ZANTAC [Concomitant]
     Active Substance: RANITIDINE HYDROCHLORIDE
  8. ZOLPIDEM [Concomitant]
     Active Substance: ZOLPIDEM\ZOLPIDEM TARTRATE

REACTIONS (16)
  - Chills [None]
  - Migraine [None]
  - Myalgia [None]
  - Insomnia [None]
  - Palpitations [None]
  - Peripheral swelling [None]
  - Hyperaesthesia [None]
  - Arthritis [None]
  - Alopecia [None]
  - Product quality issue [None]
  - Hot flush [None]
  - Headache [None]
  - Nausea [None]
  - Fibromyalgia [None]
  - Arthralgia [None]
  - Functional gastrointestinal disorder [None]

NARRATIVE: CASE EVENT DATE: 19900101
